FAERS Safety Report 9239136 (Version 2)
Quarter: 2013Q2

REPORT INFORMATION
  Report Type: Spontaneous
  Country: PE (occurrence: PE)
  Receive Date: 20130418
  Receipt Date: 20130515
  Transmission Date: 20140414
  Serious: Yes (Other)
  Sender: FDA-Public Use
  Company Number: PE-PFIZER INC-2013120936

PATIENT
  Age: 65 Year
  Sex: Male

DRUGS (2)
  1. CARDURA XL [Suspect]
     Indication: BENIGN PROSTATIC HYPERPLASIA
     Dosage: UNK
     Route: 048
     Dates: start: 201110, end: 201110
  2. XANAX [Suspect]
     Route: 048

REACTIONS (2)
  - Spinal cord herniation [Unknown]
  - Prostatic disorder [Unknown]
